FAERS Safety Report 21634271 (Version 1)
Quarter: 2022Q4

REPORT INFORMATION
  Report Type: Spontaneous
  Country: US (occurrence: US)
  Receive Date: 20221123
  Receipt Date: 20221123
  Transmission Date: 20230113
  Serious: Yes (Death)
  Sender: FDA-Public Use
  Company Number: US-CHIESI-2022CHF06128

PATIENT
  Age: 20 Year
  Sex: Female

DRUGS (7)
  1. BETHKIS [Suspect]
     Active Substance: TOBRAMYCIN
     Indication: Cystic fibrosis
     Dosage: 300 MILLIGRAM, BID
     Route: 055
     Dates: start: 202110
  2. BETHKIS [Suspect]
     Active Substance: TOBRAMYCIN
     Indication: Chronic respiratory failure
  3. BETHKIS [Suspect]
     Active Substance: TOBRAMYCIN
     Indication: Hypoxia
  4. BETHKIS [Suspect]
     Active Substance: TOBRAMYCIN
     Indication: Hypercapnia
  5. BETHKIS [Suspect]
     Active Substance: TOBRAMYCIN
     Indication: Bronchiectasis
  6. BETHKIS [Suspect]
     Active Substance: TOBRAMYCIN
     Indication: Off label use
  7. CAYSTON [Concomitant]
     Active Substance: AZTREONAM
     Indication: Product used for unknown indication
     Dosage: UNK, TID

REACTIONS (2)
  - Death [Fatal]
  - Off label use [Recovered/Resolved]

NARRATIVE: CASE EVENT DATE: 20211001
